FAERS Safety Report 5264531-7 (Version None)
Quarter: 2007Q1

REPORT INFORMATION
  Report Type: 
  Country: None (occurrence: None)
  Receive Date: 20070314
  Receipt Date: 20070309
  Transmission Date: 20070707
  Serious: Yes (Death, Other)
  Sender: FDA-Public Use
  Company Number: PHEH2006US05996

PATIENT
  Sex: Female

DRUGS (4)
  1. ZOMETA [Suspect]
     Indication: METASTASES TO BONE
     Dosage: 4 MG EVERY SIX WEEKS
     Dates: start: 20050819, end: 20060414
  2. CARBOPLATIN [Concomitant]
     Indication: LUNG NEOPLASM MALIGNANT
     Dates: start: 20050801, end: 20051201
  3. TAXOL [Concomitant]
     Indication: LUNG NEOPLASM MALIGNANT
     Dates: start: 20050801, end: 20051201
  4. AVASTIN [Concomitant]
     Indication: LUNG NEOPLASM MALIGNANT
     Dates: start: 20050801, end: 20060301

REACTIONS (7)
  - GINGIVAL RECESSION [None]
  - HYPOAESTHESIA ORAL [None]
  - LUNG NEOPLASM MALIGNANT [None]
  - MASTICATION DISORDER [None]
  - ORAL PAIN [None]
  - OSTEONECROSIS [None]
  - PAIN IN JAW [None]
